FAERS Safety Report 9803846 (Version 1)
Quarter: 2014Q1

REPORT INFORMATION
  Report Type: Spontaneous
  Country: US (occurrence: US)
  Receive Date: 20140108
  Receipt Date: 20140108
  Transmission Date: 20141002
  Serious: No
  Sender: FDA-Public Use
  Company Number: US-GLAXOSMITHKLINE-A1047731A

PATIENT
  Age: 45 Year
  Sex: Male

DRUGS (3)
  1. LOVAZA [Suspect]
     Indication: ARTHRALGIA
     Dosage: 2G PER DAY
     Route: 048
  2. ZANTAC [Suspect]
     Indication: GASTROOESOPHAGEAL REFLUX DISEASE
     Dosage: 1TAB VARIABLE DOSE
     Route: 048
  3. VITAMIN B COMPLEX [Concomitant]

REACTIONS (3)
  - Liver function test abnormal [Unknown]
  - Off label use [Unknown]
  - Incorrect dose administered [Unknown]
